FAERS Safety Report 8329338-2 (Version None)
Quarter: 2012Q2

REPORT INFORMATION
  Report Type: 
  Country: None (occurrence: None)
  Receive Date: 20120502
  Receipt Date: 20110808
  Transmission Date: 20120825
  Serious: No
  Sender: FDA-Public Use
  Company Number: US-ASTRAZENECA-2011SE38301

PATIENT
  Age: 81 Year
  Sex: Female
  Weight: 68 kg

DRUGS (4)
  1. HERCEPTIN [Concomitant]
     Indication: BREAST CANCER METASTATIC
  2. FASLODEX [Suspect]
     Indication: BREAST CANCER
     Route: 030
  3. FASLODEX [Suspect]
     Route: 030
  4. FASLODEX [Suspect]
     Route: 030

REACTIONS (2)
  - CHILLS [None]
  - PAIN [None]
